FAERS Safety Report 13076637 (Version 1)
Quarter: 2016Q4

REPORT INFORMATION
  Report Type: Spontaneous
  Country: US (occurrence: US)
  Receive Date: 20161230
  Receipt Date: 20161230
  Transmission Date: 20170207
  Serious: Yes (Other)
  Sender: FDA-Public Use
  Company Number: US-TEVA-724545USA

PATIENT
  Age: 51 Year
  Sex: Female

DRUGS (13)
  1. PREDNISON [Concomitant]
     Active Substance: PREDNISONE
  2. COPAXONE [Suspect]
     Active Substance: GLATIRAMER ACETATE
     Indication: MULTIPLE SCLEROSIS
     Route: 058
  3. LISINOPRIL. [Concomitant]
     Active Substance: LISINOPRIL
  4. XANAX [Concomitant]
     Active Substance: ALPRAZOLAM
  5. VANCOMYCIN [Concomitant]
     Active Substance: VANCOMYCIN
  6. REQUIP [Concomitant]
     Active Substance: ROPINIROLE HYDROCHLORIDE
  7. MORPHINE [Concomitant]
     Active Substance: MORPHINE
  8. PERCOCET [Concomitant]
     Active Substance: ACETAMINOPHEN\OXYCODONE HYDROCHLORIDE
  9. AMBIEN [Concomitant]
     Active Substance: ZOLPIDEM TARTRATE
  10. CALCIUM [Concomitant]
     Active Substance: CALCIUM
  11. VITAMINS NOS [Concomitant]
     Active Substance: VITAMINS
  12. ADVAIR HFA [Concomitant]
     Active Substance: FLUTICASONE PROPIONATE\SALMETEROL XINAFOATE
  13. BACTRIM [Concomitant]
     Active Substance: SULFAMETHOXAZOLE\TRIMETHOPRIM

REACTIONS (2)
  - Drug dose omission [Unknown]
  - Multiple sclerosis relapse [Unknown]

NARRATIVE: CASE EVENT DATE: 201611
